FAERS Safety Report 5399831-3 (Version None)
Quarter: 2007Q3

REPORT INFORMATION
  Report Type: 
  Country: None (occurrence: None)
  Receive Date: 20070730
  Receipt Date: 20070725
  Transmission Date: 20080115
  Serious: Yes (Life-Threatening, Hospitalization)
  Sender: FDA-Public Use
  Company Number: PHEH2007US10382

PATIENT
  Sex: Female

DRUGS (2)
  1. ZELNORM [Suspect]
  2. ORAL CONTRACEPTIVE NOS [Suspect]

REACTIONS (1)
  - EMBOLISM [None]
